FAERS Safety Report 4773161-2 (Version None)
Quarter: 2005Q2

REPORT INFORMATION
  Report Type: 
  Country: None (occurrence: None)
  Receive Date: 20050615
  Receipt Date: 20050615
  Transmission Date: 20051028
  Serious: No
  Sender: FDA-Public Use
  Company Number: None

PATIENT
  Age: 83 Year
  Sex: Female

DRUGS (1)
  1. DIGOXIN [Suspect]

REACTIONS (2)
  - LABORATORY TEST ABNORMAL [None]
  - LABORATORY TEST INTERFERENCE [None]
